FAERS Safety Report 18339351 (Version 1)
Quarter: 2020Q4

REPORT INFORMATION
  Report Type: Spontaneous
  Country: US (occurrence: US)
  Receive Date: 20201002
  Receipt Date: 20201002
  Transmission Date: 20210113
  Serious: No
  Sender: FDA-Public Use
  Company Number: None

PATIENT
  Age: 91 Year
  Sex: Male
  Weight: 65.9 kg

DRUGS (3)
  1. REMDESIVIR 200MG/250ML NS [Concomitant]
     Dates: start: 20200930, end: 20200930
  2. REMDESIVIR 100MG/250ML NS [Concomitant]
     Dates: start: 20201001, end: 20201001
  3. REMDESIVIR. [Suspect]
     Active Substance: REMDESIVIR
     Indication: COVID-19
     Dosage: ?          OTHER FREQUENCY:ONCE, 100MG QD;?
     Route: 042
     Dates: start: 20200930, end: 20201001

REACTIONS (2)
  - Aspartate aminotransferase increased [None]
  - Alanine aminotransferase increased [None]

NARRATIVE: CASE EVENT DATE: 20201002
